FAERS Safety Report 10063267 (Version 2)
Quarter: 2014Q2

REPORT INFORMATION
  Report Type: Spontaneous
  Country: US (occurrence: US)
  Receive Date: 20140407
  Receipt Date: 20140430
  Transmission Date: 20141212
  Serious: Yes (Death, Hospitalization, Other)
  Sender: FDA-Public Use
  Company Number: US-ELI_LILLY_AND_COMPANY-US201403008997

PATIENT
  Age: 73 Year
  Sex: Male

DRUGS (2)
  1. ALIMTA [Suspect]
     Indication: MESOTHELIOMA MALIGNANT
     Dosage: 500 MG/M2, UNKNOWN
     Route: 042
     Dates: end: 20140320
  2. CARBOPLATIN [Concomitant]
     Indication: MESOTHELIOMA MALIGNANT

REACTIONS (13)
  - Death [Fatal]
  - Haemolytic anaemia [Unknown]
  - Blood creatinine increased [Unknown]
  - Blood urine present [Unknown]
  - Chest pain [Unknown]
  - Head discomfort [Unknown]
  - Pallor [Unknown]
  - Aspartate aminotransferase increased [Unknown]
  - Chills [Unknown]
  - Alanine aminotransferase increased [Unknown]
  - Blood alkaline phosphatase increased [Unknown]
  - Platelet count decreased [Unknown]
  - Off label use [Unknown]
